FAERS Safety Report 11832125 (Version 1)
Quarter: 2015Q4

REPORT INFORMATION
  Report Type: Report from Study
  Country: None (occurrence: US)
  Receive Date: 20151214
  Receipt Date: 20151214
  Transmission Date: 20160305
  Serious: Yes (Hospitalization)
  Sender: FDA-Public Use
  Company Number: US-BIOGEN-2014BI077367

PATIENT
  Age: 77 Year
  Sex: Female

DRUGS (1)
  1. AVONEX [Suspect]
     Active Substance: INTERFERON BETA-1A
     Indication: MULTIPLE SCLEROSIS
     Route: 030
     Dates: start: 19990201

REACTIONS (12)
  - Musculoskeletal pain [Unknown]
  - Knee arthroplasty [Recovered/Resolved]
  - Feeling abnormal [Unknown]
  - Hip arthroplasty [Recovered/Resolved]
  - Gait disturbance [Unknown]
  - Headache [Unknown]
  - Femur fracture [Not Recovered/Not Resolved]
  - Pelvic fracture [Not Recovered/Not Resolved]
  - Nervousness [Unknown]
  - Shoulder arthroplasty [Recovered/Resolved]
  - Memory impairment [Unknown]
  - Fall [Recovered/Resolved]

NARRATIVE: CASE EVENT DATE: 2001
